FAERS Safety Report 10034402 (Version 1)
Quarter: 2014Q1

REPORT INFORMATION
  Report Type: Spontaneous
  Country: US (occurrence: US)
  Receive Date: 20140325
  Receipt Date: 20140325
  Transmission Date: 20141002
  Serious: No
  Sender: FDA-Public Use
  Company Number: US-009507513-1403USA004099

PATIENT
  Sex: Female

DRUGS (2)
  1. COZAAR [Suspect]
     Dosage: 100MG , ONE A DAY
     Route: 048
     Dates: start: 200203
  2. HYDROCHLOROTHIAZIDE [Suspect]
     Route: 048

REACTIONS (9)
  - Chills [Unknown]
  - Feeling hot [Unknown]
  - Burning sensation [Unknown]
  - Paraesthesia [Unknown]
  - Tremor [Unknown]
  - Dry mouth [Unknown]
  - Pruritus [Unknown]
  - Glossodynia [Unknown]
  - Oral discomfort [Unknown]
